FAERS Safety Report 17200699 (Version 1)
Quarter: 2019Q4

REPORT INFORMATION
  Report Type: Spontaneous
  Country: SE (occurrence: SE)
  Receive Date: 20191226
  Receipt Date: 20191226
  Transmission Date: 20200122
  Serious: Yes (Hospitalization)
  Sender: FDA-Public Use
  Company Number: SE-TEVA-2019-SE-1157034

PATIENT
  Sex: Female

DRUGS (4)
  1. PROPAVAN [Suspect]
     Active Substance: PROPIOMAZINE
     Dosage: 8 ST
     Route: 048
     Dates: start: 20180709, end: 20180709
  2. ATARAX [Suspect]
     Active Substance: HYDROXYZINE HYDROCHLORIDE
     Dosage: 14 ST
     Dates: start: 20180709, end: 20180709
  3. OXASCAND [Suspect]
     Active Substance: OXAZEPAM
     Dosage: 8 ST
     Dates: start: 20180709, end: 20180709
  4. ZOPICLONE [Suspect]
     Active Substance: ZOPICLONE
     Dosage: 8 ST
     Dates: start: 20180709, end: 20180709

REACTIONS (4)
  - Fatigue [Unknown]
  - Intentional self-injury [Unknown]
  - Intentional overdose [Unknown]
  - Hypotension [Unknown]

NARRATIVE: CASE EVENT DATE: 20180709
